FAERS Safety Report 7454826-0 (Version None)
Quarter: 2011Q2

REPORT INFORMATION
  Report Type: 
  Country: None (occurrence: None)
  Receive Date: 20110503
  Receipt Date: 20100511
  Transmission Date: 20111010
  Serious: No
  Sender: FDA-Public Use
  Company Number: US-PFIZER INC-2010060106

PATIENT
  Sex: Female
  Weight: 47.619 kg

DRUGS (4)
  1. DARVOCET [Concomitant]
     Indication: MIGRAINE
     Dosage: UNK
  2. DEPO-PROVERA [Suspect]
     Indication: CONTRACEPTION
     Dosage: UNK
     Dates: start: 19970101, end: 20040101
  3. ACCUTANE [Concomitant]
     Dosage: UNK
  4. DEPO-PROVERA [Suspect]
     Indication: CYST

REACTIONS (1)
  - WEIGHT INCREASED [None]
